FAERS Safety Report 9701783 (Version 1)
Quarter: 2013Q4

REPORT INFORMATION
  Report Type: Spontaneous
  Country: MX (occurrence: MX)
  Receive Date: 20131121
  Receipt Date: 20131121
  Transmission Date: 20140711
  Serious: Yes (Other)
  Sender: FDA-Public Use
  Company Number: PHHY2013MX132517

PATIENT
  Age: 63 Year
  Sex: Male

DRUGS (1)
  1. MIACALCIC [Suspect]
     Indication: BONE FISSURE
     Dosage: ONE SHOT IN EVERY 10 DAYS
     Route: 045

REACTIONS (2)
  - Hepatitis C [Not Recovered/Not Resolved]
  - Rheumatoid arthritis [Not Recovered/Not Resolved]
